FAERS Safety Report 11430109 (Version 2)
Quarter: 2015Q3

REPORT INFORMATION
  Report Type: Spontaneous
  Country: US (occurrence: US)
  Receive Date: 20150828
  Receipt Date: 20150904
  Transmission Date: 20151125
  Serious: Yes (Other)
  Sender: FDA-Public Use
  Company Number: PHEH2015US003172

PATIENT
  Age: 64 Year
  Sex: Female
  Weight: 82.25 kg

DRUGS (1)
  1. RECLAST [Suspect]
     Active Substance: ZOLEDRONIC ACID
     Indication: OSTEOPOROSIS
     Dosage: 5 MG, ONE TIME DOSE, YEARLY
     Route: 042
     Dates: start: 20150121

REACTIONS (3)
  - Back pain [Recovered/Resolved]
  - Blood pressure increased [Unknown]
  - Angioedema [Recovered/Resolved]

NARRATIVE: CASE EVENT DATE: 20150121
